FAERS Safety Report 16132795 (Version 2)
Quarter: 2019Q3

REPORT INFORMATION
  Report Type: Spontaneous
  Country: US (occurrence: US)
  Receive Date: 20190329
  Receipt Date: 20190710
  Transmission Date: 20191004
  Serious: Yes (Hospitalization)
  Sender: FDA-Public Use
  Company Number: US-PFIZER INC-2019122220

PATIENT
  Age: 73 Year
  Sex: Female
  Weight: 77.98 kg

DRUGS (6)
  1. CHANTIX [Interacting]
     Active Substance: VARENICLINE TARTRATE
     Dosage: 1 MG, 1X/DAY
     Route: 048
  2. CHANTIX [Interacting]
     Active Substance: VARENICLINE TARTRATE
     Dosage: 2X/DAY
     Route: 048
  3. OXYCODONE [OXYCODONE HYDROCHLORIDE] [Interacting]
     Active Substance: OXYCODONE HYDROCHLORIDE
     Dosage: 5 MG ONCE
     Route: 048
  4. MELOXICAM. [Concomitant]
     Active Substance: MELOXICAM
     Indication: PAIN
     Dosage: 15 MG, 1X/DAY
     Route: 048
  5. OXYCODONE [OXYCODONE HYDROCHLORIDE] [Interacting]
     Active Substance: OXYCODONE HYDROCHLORIDE
     Indication: PAIN
     Dosage: 5 MG TABLET, FOUR TIMES A DAY, AS NEEDED
     Route: 048
     Dates: start: 2018
  6. CHANTIX [Suspect]
     Active Substance: VARENICLINE TARTRATE
     Indication: SMOKING CESSATION THERAPY
     Dosage: 0.5 MG, 1X/DAY
     Route: 048
     Dates: start: 20190216

REACTIONS (7)
  - Drug ineffective [Unknown]
  - Fatigue [Unknown]
  - Intentional product misuse [Recovered/Resolved]
  - Insomnia [Unknown]
  - Drug interaction [Unknown]
  - Somnolence [Unknown]
  - Abnormal dreams [Unknown]

NARRATIVE: CASE EVENT DATE: 20190325
